FAERS Safety Report 11455911 (Version 2)
Quarter: 2015Q4

REPORT INFORMATION
  Report Type: Report from Study
  Country: JP (occurrence: JP)
  Receive Date: 20150903
  Receipt Date: 20151014
  Transmission Date: 20160304
  Serious: Yes (Hospitalization, Congenital Anomaly)
  Sender: FDA-Public Use
  Company Number: JP-EISAI MEDICAL RESEARCH-EC-2015-010020

PATIENT
  Age: 0 Year
  Sex: Female
  Weight: 2.77 kg

DRUGS (1)
  1. RABEPRAZOLE [Suspect]
     Active Substance: RABEPRAZOLE
     Indication: FOETAL EXPOSURE DURING PREGNANCY
     Dosage: DOUBLE BLIND (MAINTENANCE PERIOD)
     Route: 064
     Dates: start: 2014, end: 20141010

REACTIONS (2)
  - Heart disease congenital [Recovered/Resolved]
  - Foetal exposure during pregnancy [Not Recovered/Not Resolved]

NARRATIVE: CASE EVENT DATE: 2014
